FAERS Safety Report 19949509 (Version 1)
Quarter: 2021Q4

REPORT INFORMATION
  Report Type: Spontaneous
  Country: IR (occurrence: IR)
  Receive Date: 20211013
  Receipt Date: 20211013
  Transmission Date: 20220304
  Serious: Yes (Hospitalization, Other)
  Sender: FDA-Public Use
  Company Number: IR-ABBVIE-21K-080-4112908-00

PATIENT
  Age: 18 Year
  Sex: Female

DRUGS (4)
  1. VALPROATE SODIUM [Suspect]
     Active Substance: VALPROATE SODIUM
     Indication: Product used for unknown indication
     Route: 065
  2. VALPROATE SODIUM [Suspect]
     Active Substance: VALPROATE SODIUM
     Route: 065
  3. VALPROATE SODIUM [Suspect]
     Active Substance: VALPROATE SODIUM
     Dosage: DOSE REDUCED
     Route: 065
  4. NITRAZEPAM [Suspect]
     Active Substance: NITRAZEPAM
     Indication: Product used for unknown indication
     Route: 065

REACTIONS (9)
  - Neutrophil Pelger-Huet anomaly present [Unknown]
  - Aphasia [Unknown]
  - Bone marrow disorder [Unknown]
  - Red blood cell abnormality [Unknown]
  - Pallor [Unknown]
  - Seizure [Unknown]
  - Apraxia [Unknown]
  - Pancytopenia [Recovering/Resolving]
  - Epistaxis [Unknown]
